FAERS Safety Report 4324935-3 (Version None)
Quarter: 2004Q1

REPORT INFORMATION
  Report Type: 
  Country: None (occurrence: None)
  Receive Date: 20040323
  Receipt Date: 20040308
  Transmission Date: 20041129
  Serious: Yes (Other)
  Sender: FDA-Public Use
  Company Number: 2004016368

PATIENT
  Age: 83 Year
  Sex: Male

DRUGS (7)
  1. DOXAZOSIN MESLYLATE [Suspect]
     Indication: HYPERTENSION
     Dosage: 2 MG (DAILY), ORAL
     Route: 048
     Dates: start: 20040216, end: 20040216
  2. ALLOPURINOL [Concomitant]
  3. ACETYLSALICYLIC ACID SRT [Concomitant]
  4. BENDROFLUMETHIAZIDE            (BENDROFLUMETHIAZIDE) [Concomitant]
  5. FINASTERIDE [Concomitant]
  6. RANITIDINE [Concomitant]
  7. DESMOPRESSIN (DESMOPRESSIN) [Concomitant]

REACTIONS (1)
  - LOSS OF CONSCIOUSNESS [None]
